FAERS Safety Report 24166958 (Version 2)
Quarter: 2025Q3

REPORT INFORMATION
  Report Type: Spontaneous
  Country: US (occurrence: US)
  Receive Date: 20240802
  Receipt Date: 20250722
  Transmission Date: 20251020
  Serious: No
  Sender: ENDO
  Company Number: US-ENDO USA, INC.-2024-002481

PATIENT
  Age: 69 Year
  Sex: Male
  Weight: 99.773 kg

DRUGS (6)
  1. EDEX [Suspect]
     Active Substance: ALPROSTADIL
     Indication: Erectile dysfunction
     Route: 051
     Dates: start: 20240530
  2. EDEX [Suspect]
     Active Substance: ALPROSTADIL
     Indication: Erectile dysfunction
     Route: 051
     Dates: start: 20240530
  3. EDEX [Suspect]
     Active Substance: ALPROSTADIL
     Indication: Erectile dysfunction
     Route: 051
     Dates: start: 20240530
  4. EDEX [Suspect]
     Active Substance: ALPROSTADIL
     Indication: Erectile dysfunction
     Route: 051
     Dates: start: 20240530
  5. EDEX [Suspect]
     Active Substance: ALPROSTADIL
     Indication: Erectile dysfunction
     Route: 051
     Dates: start: 20240530
  6. TADALAFIL [Concomitant]
     Active Substance: TADALAFIL
     Indication: Product used for unknown indication
     Route: 065

REACTIONS (1)
  - Therapeutic product effect incomplete [Unknown]

NARRATIVE: CASE EVENT DATE: 20240530
